FAERS Safety Report 18128385 (Version 2)
Quarter: 2020Q3

REPORT INFORMATION
  Report Type: Spontaneous
  Country: ES (occurrence: ES)
  Receive Date: 20200810
  Receipt Date: 20200811
  Transmission Date: 20201103
  Serious: Yes (Life-Threatening, Other)
  Sender: FDA-Public Use
  Company Number: ES-TAKEDA-2020TUS033911

PATIENT
  Age: 69 Year
  Sex: Female
  Weight: 54.6 kg

DRUGS (2)
  1. VELCADE [Suspect]
     Active Substance: BORTEZOMIB
     Indication: AMYLOIDOSIS
     Dosage: 0.7 MILLIGRAM/SQ. METER, 1/WEEK
     Route: 058
     Dates: start: 20200706, end: 20200714
  2. DARZALEX [Suspect]
     Active Substance: DARATUMUMAB
     Indication: AMYLOIDOSIS
     Dosage: 16 MILLIGRAM/KILOGRAM
     Route: 065
     Dates: start: 20200714, end: 20200714

REACTIONS (3)
  - Intestinal perforation [Recovering/Resolving]
  - Off label use [Unknown]
  - Product use in unapproved indication [Unknown]

NARRATIVE: CASE EVENT DATE: 20200716
